FAERS Safety Report 5832470-6 (Version None)
Quarter: 2008Q3

REPORT INFORMATION
  Report Type: 
  Country: None (occurrence: None)
  Receive Date: 20080804
  Receipt Date: 20080722
  Transmission Date: 20090109
  Serious: Yes (Hospitalization)
  Sender: FDA-Public Use
  Company Number: FR-ROCHE-503780

PATIENT
  Age: 36 Year
  Sex: Female

DRUGS (10)
  1. CELLCEPT [Suspect]
     Route: 065
     Dates: start: 20060523, end: 20060523
  2. MIMPARA [Suspect]
     Indication: HYPERPARATHYROIDISM SECONDARY
     Route: 048
     Dates: start: 20060523
  3. PREDNISONE [Suspect]
     Route: 065
  4. TACROLIMUS [Suspect]
     Indication: DRUG USE FOR UNKNOWN INDICATION
     Route: 065
  5. PROGRAF [Suspect]
     Route: 065
     Dates: start: 20060523
  6. CORTANCYL [Concomitant]
     Dates: start: 20060523
  7. ESOMEPRAZOLE [Concomitant]
     Dates: end: 20060611
  8. AMLODIPINE [Concomitant]
     Dates: end: 20080611
  9. CONTRACEPTIVE NOS [Concomitant]
     Route: 048
  10. ALLOPURINOL [Concomitant]

REACTIONS (3)
  - HEPATITIS CHOLESTATIC [None]
  - NODULAR REGENERATIVE HYPERPLASIA [None]
  - OESOPHAGITIS [None]
